FAERS Safety Report 15766946 (Version 1)
Quarter: 2018Q4

REPORT INFORMATION
  Report Type: Spontaneous
  Country: DE (occurrence: DE)
  Receive Date: 20181227
  Receipt Date: 20181227
  Transmission Date: 20190205
  Serious: Yes (Hospitalization)
  Sender: FDA-Public Use
  Company Number: DE-SAMSUNG BIOEPIS-SB-2018-16869

PATIENT
  Age: 27 Year
  Sex: Male
  Weight: 89 kg

DRUGS (4)
  1. FLIXABI [Suspect]
     Active Substance: INFLIXIMAB
     Route: 065
     Dates: start: 20181127
  2. FLIXABI [Suspect]
     Active Substance: INFLIXIMAB
     Indication: PRODUCT USED FOR UNKNOWN INDICATION
     Route: 065
     Dates: start: 20180910
  3. FLIXABI [Suspect]
     Active Substance: INFLIXIMAB
     Route: 065
     Dates: start: 20181212
  4. MESALAZINE [Suspect]
     Active Substance: MESALAMINE
     Indication: CROHN^S DISEASE
     Route: 065
     Dates: start: 20180802

REACTIONS (3)
  - Anaemia [Recovered/Resolved]
  - Acute kidney injury [Recovered/Resolved]
  - Crohn^s disease [Recovered/Resolved]

NARRATIVE: CASE EVENT DATE: 20181119
